FAERS Safety Report 26100150 (Version 2)
Quarter: 2025Q4

REPORT INFORMATION
  Report Type: Report from Study
  Country: US (occurrence: US)
  Receive Date: 20251128
  Receipt Date: 20251208
  Transmission Date: 20260118
  Serious: Yes (Hospitalization, Other)
  Sender: BIOCODEX
  Company Number: US-BIOCODEX2-2025001570

PATIENT
  Age: 30 Year
  Sex: Female
  Weight: 77.8 kg

DRUGS (22)
  1. DIACOMIT [Suspect]
     Active Substance: STIRIPENTOL
     Indication: Severe myoclonic epilepsy of infancy
     Dosage: DAYS 1-7: TAKE 500MG BY MOUTH THREE TIMES DAILY
     Dates: start: 202510
  2. DIACOMIT [Suspect]
     Active Substance: STIRIPENTOL
     Dosage: DAYS 8 AND THEREAFTER: TAKE 1000MG BY MOUTH THREE TIMES DAILY
     Dates: start: 202510
  3. DIACOMIT [Suspect]
     Active Substance: STIRIPENTOL
     Dosage: 1000 MG BY MOUTH THREE TIMES DAILY
     Dates: start: 20251010
  4. DIACOMIT [Suspect]
     Active Substance: STIRIPENTOL
     Dosage: 500 MG VIA NG-TUBE THREE TIMES DAILY
     Dates: start: 20251010
  5. DIACOMIT [Suspect]
     Active Substance: STIRIPENTOL
  6. DIACOMIT [Suspect]
     Active Substance: STIRIPENTOL
  7. DIACOMIT [Suspect]
     Active Substance: STIRIPENTOL
  8. DIACOMIT [Suspect]
     Active Substance: STIRIPENTOL
  9. CLOBAZAM [Concomitant]
     Active Substance: CLOBAZAM
     Indication: Severe myoclonic epilepsy of infancy
  10. CLOBAZAM [Concomitant]
     Active Substance: CLOBAZAM
  11. CLONAZEPAM [Concomitant]
     Active Substance: CLONAZEPAM
     Indication: Product used for unknown indication
  12. CLONAZEPAM [Concomitant]
     Active Substance: CLONAZEPAM
  13. EPIDIOLEX [Concomitant]
     Active Substance: CANNABIDIOL
     Indication: Product used for unknown indication
  14. EPIDIOLEX [Concomitant]
     Active Substance: CANNABIDIOL
  15. FINTEPLA [Concomitant]
     Active Substance: FENFLURAMINE
     Indication: Product used for unknown indication
  16. FINTEPLA [Concomitant]
     Active Substance: FENFLURAMINE
  17. KEPPRA [Concomitant]
     Active Substance: LEVETIRACETAM
     Indication: Product used for unknown indication
  18. KEPPRA [Concomitant]
     Active Substance: LEVETIRACETAM
  19. LORAZEPAM [Concomitant]
     Active Substance: LORAZEPAM
     Indication: Product used for unknown indication
  20. LORAZEPAM [Concomitant]
     Active Substance: LORAZEPAM
  21. cannabidiol powder [Concomitant]
     Indication: Product used for unknown indication
  22. cannabidiol powder [Concomitant]

REACTIONS (4)
  - Seizure [Unknown]
  - Drug ineffective [Unknown]
  - Off label use [Unknown]
  - Wrong technique in product usage process [Unknown]

NARRATIVE: CASE EVENT DATE: 20251011
